FAERS Safety Report 22590977 (Version 1)
Quarter: 2023Q2

REPORT INFORMATION
  Report Type: Spontaneous
  Country: US (occurrence: US)
  Receive Date: 20230612
  Receipt Date: 20230612
  Transmission Date: 20230721
  Serious: No
  Sender: FDA-Public Use
  Company Number: US-INCYTE CORPORATION-2023IN005780

PATIENT

DRUGS (5)
  1. JAKAFI [Suspect]
     Active Substance: RUXOLITINIB
     Route: 065
  2. ASPIRIN [Concomitant]
     Active Substance: ASPIRIN
     Indication: Product used for unknown indication
     Route: 065
  3. PROZAC [Concomitant]
     Active Substance: FLUOXETINE HYDROCHLORIDE
     Indication: Product used for unknown indication
     Route: 065
  4. IBUPROFEN [Concomitant]
     Active Substance: IBUPROFEN
     Indication: Product used for unknown indication
     Route: 065
  5. DAIRY RELIEF [Concomitant]
     Indication: Product used for unknown indication
     Route: 065

REACTIONS (10)
  - Hypoaesthesia [Unknown]
  - Skin discolouration [Unknown]
  - Tremor [Unknown]
  - Tinnitus [Unknown]
  - Fatigue [Unknown]
  - Depression [Unknown]
  - Skin lesion [Unknown]
  - Dizziness [Unknown]
  - Headache [Unknown]
  - Anaemia [Unknown]
